FAERS Safety Report 14107836 (Version 1)
Quarter: 2017Q4

REPORT INFORMATION
  Report Type: Spontaneous
  Country: US (occurrence: US)
  Receive Date: 20171019
  Receipt Date: 20171019
  Transmission Date: 20180321
  Serious: No
  Sender: FDA-Public Use
  Company Number: US-GLAXOSMITHKLINE-US2017156177

PATIENT
  Age: 64 Year
  Sex: Female

DRUGS (7)
  1. ATORVASTATIN [Concomitant]
     Active Substance: ATORVASTATIN
  2. ERYTHROMYCIN EYE OINTMENT [Concomitant]
     Active Substance: ERYTHROMYCIN
  3. TANZEUM [Suspect]
     Active Substance: ALBIGLUTIDE
     Dosage: 50 MG, WE
     Route: 058
  4. TANZEUM [Suspect]
     Active Substance: ALBIGLUTIDE
     Indication: TYPE 2 DIABETES MELLITUS
     Dosage: 30 MG, WE
     Route: 058
  5. LISINOPRIL. [Concomitant]
     Active Substance: LISINOPRIL
  6. LANTUS [Concomitant]
     Active Substance: INSULIN GLARGINE
  7. METFORMIN [Concomitant]
     Active Substance: METFORMIN HYDROCHLORIDE

REACTIONS (16)
  - Pruritus [Not Recovered/Not Resolved]
  - Pain in extremity [Not Recovered/Not Resolved]
  - Hordeolum [Unknown]
  - Dry skin [Not Recovered/Not Resolved]
  - Amenorrhoea [Unknown]
  - Alopecia [Not Recovered/Not Resolved]
  - Menorrhagia [Unknown]
  - Eye pain [Unknown]
  - Weight decreased [Unknown]
  - Vaginal haemorrhage [Not Recovered/Not Resolved]
  - Eye disorder [Unknown]
  - Dry eye [Unknown]
  - Eye discharge [Unknown]
  - Skin lesion [Not Recovered/Not Resolved]
  - Skin exfoliation [Not Recovered/Not Resolved]
  - Eyelid function disorder [Unknown]

NARRATIVE: CASE EVENT DATE: 2016
